FAERS Safety Report 24720516 (Version 4)
Quarter: 2025Q2

REPORT INFORMATION
  Report Type: Report from Study
  Country: CA (occurrence: CA)
  Receive Date: 20241211
  Receipt Date: 20250515
  Transmission Date: 20250717
  Serious: Yes (Other)
  Sender: TAKEDA
  Company Number: CA-TAKEDA-2023TUS071259

PATIENT
  Sex: Male
  Weight: 99.79 kg

DRUGS (3)
  1. VEDOLIZUMAB [Suspect]
     Active Substance: VEDOLIZUMAB
     Indication: Crohn^s disease
  2. VEDOLIZUMAB [Suspect]
     Active Substance: VEDOLIZUMAB
     Dosage: 300 MILLIGRAM, Q4WEEKS
     Dates: start: 202412
  3. TESTOSTERONE [Concomitant]
     Active Substance: TESTOSTERONE
     Dosage: UNK UNK, Q2WEEKS

REACTIONS (10)
  - Crohn^s disease [Recovering/Resolving]
  - Perineal cellulitis [Unknown]
  - Enterocutaneous fistula [Unknown]
  - Therapeutic reaction time decreased [Unknown]
  - Anal fistula [Unknown]
  - Lipoma [Unknown]
  - Abscess [Unknown]
  - Mouth ulceration [Unknown]
  - Anal fissure [Unknown]
  - Arthralgia [Unknown]
